FAERS Safety Report 14012182 (Version 1)
Quarter: 2017Q3

REPORT INFORMATION
  Report Type: Report from Study
  Country: US (occurrence: US)
  Receive Date: 20170926
  Receipt Date: 20170926
  Transmission Date: 20171128
  Serious: Yes (Death)
  Sender: FDA-Public Use
  Company Number: US-PFIZER INC-2017413159

PATIENT
  Age: 62 Year
  Sex: Male

DRUGS (5)
  1. FLOXURIDINE. [Suspect]
     Active Substance: FLOXURIDINE
     Indication: COLON CANCER STAGE IV
     Dosage: 0.20 MG/ KG/DAY FOR 14 DAYS (3 CYCLES)
  2. FLOXURIDINE. [Suspect]
     Active Substance: FLOXURIDINE
     Dosage: 0.10 MG/ KG/DAY FOR 14 DAYS
  3. BEVACIZUMAB. [Concomitant]
     Active Substance: BEVACIZUMAB
     Indication: COLON CANCER STAGE IV
     Dosage: UNK
  4. FLOXURIDINE. [Suspect]
     Active Substance: FLOXURIDINE
     Dosage: 0.15 MG/ KG/DAY FOR 14 DAYS
  5. GEMCITABINE HYDROCHLORIDE. [Suspect]
     Active Substance: GEMCITABINE HYDROCHLORIDE
     Indication: COLON CANCER STAGE IV
     Dosage: 105 MG/M2, CYCLIC (ON DAYS 9-11 BOLUS INTRAVENOUS INFUSION OVER 30 MINUTES)
     Route: 042

REACTIONS (2)
  - Acute myeloid leukaemia [Fatal]
  - Second primary malignancy [Fatal]
